FAERS Safety Report 25736681 (Version 1)
Quarter: 2025Q3

REPORT INFORMATION
  Report Type: Spontaneous
  Country: US (occurrence: US)
  Receive Date: 20250828
  Receipt Date: 20250828
  Transmission Date: 20251021
  Serious: Yes (Other)
  Sender: INCYTE
  Company Number: US-INCYTE CORPORATION-2025IN009245

PATIENT

DRUGS (1)
  1. JAKAFI [Suspect]
     Active Substance: RUXOLITINIB
     Indication: Graft versus host disease

REACTIONS (7)
  - Chronic myeloid leukaemia [Unknown]
  - Chronic leukaemia [Unknown]
  - Leukaemia [Unknown]
  - Neoplasm recurrence [Unknown]
  - Chronic obstructive pulmonary disease [Unknown]
  - Product availability issue [Unknown]
  - Product dose omission issue [Unknown]
